FAERS Safety Report 9804918 (Version 2)
Quarter: 2014Q1

REPORT INFORMATION
  Report Type: Report from Study
  Country: BR (occurrence: BR)
  Receive Date: 20140108
  Receipt Date: 20140318
  Transmission Date: 20141002
  Serious: Yes (Hospitalization)
  Sender: FDA-Public Use
  Company Number: BR-ROCHE-1331077

PATIENT
  Age: 75 Year
  Sex: Female
  Weight: 77 kg

DRUGS (7)
  1. MABTHERA [Suspect]
     Indication: RHEUMATOID ARTHRITIS
     Route: 042
     Dates: start: 20130401
  2. DIOVAN [Concomitant]
     Indication: BLOOD PRESSURE INCREASED
     Route: 065
  3. PURAN T4 [Concomitant]
     Indication: HYPOTHYROIDISM
     Route: 065
  4. SIMVASTATIN [Concomitant]
     Indication: BLOOD CHOLESTEROL INCREASED
     Route: 065
  5. ACETYLSALICYLIC ACID [Concomitant]
     Dosage: TO THIN BLOOD
     Route: 065
  6. PREDNISONE [Concomitant]
     Route: 065
     Dates: end: 2014
  7. GLIFAGE XR [Concomitant]
     Indication: DIABETES MELLITUS
     Route: 065

REACTIONS (3)
  - Herpes simplex [Recovering/Resolving]
  - Immunodeficiency [Recovered/Resolved]
  - Diplopia [Not Recovered/Not Resolved]
